FAERS Safety Report 8508863-5 (Version None)
Quarter: 2012Q3

REPORT INFORMATION
  Report Type: 
  Country: None (occurrence: None)
  Receive Date: 20120713
  Receipt Date: 20120710
  Transmission Date: 20120928
  Serious: Yes (Other)
  Sender: FDA-Public Use
  Company Number: PHHY2012AU014299

PATIENT
  Sex: Female

DRUGS (14)
  1. CLOZARIL [Suspect]
     Dosage: 800 MG, UNK
     Dates: start: 20070821, end: 20091102
  2. CLOZARIL [Suspect]
     Dosage: 750 MG, UNK
     Dates: start: 20091130, end: 20100628
  3. CLOZARIL [Suspect]
     Dosage: 300 MG, UNK
     Dates: start: 20110719, end: 20110725
  4. CLOZARIL [Suspect]
     Dosage: 750 MG, UNK
     Dates: start: 20070206, end: 20070727
  5. CLOZARIL [Suspect]
     Dosage: 200 MG, UNK
     Dates: start: 20110704, end: 20110718
  6. CLOZAPINE [Suspect]
     Dosage: 400 MG, QD
  7. CLOZARIL [Suspect]
     Dosage: 450 MG, DAILY
     Dates: start: 20050223
  8. CLOZARIL [Suspect]
     Dosage: 650 MG, UNK
     Dates: start: 20101018, end: 20110530
  9. CLOZARIL [Suspect]
     Dosage: 400 MG, UNK
     Dates: start: 20110801, end: 20110905
  10. CLOZARIL [Suspect]
     Dosage: 500 MG, UNK
     Dates: start: 20110920, end: 20111123
  11. CLOZARIL [Suspect]
     Dosage: 475 MG, UNK
     Dates: start: 20111215, end: 20120217
  12. CLOZARIL [Suspect]
     Dosage: 450 MG, UNK
     Dates: start: 20120220
  13. CLOZARIL [Suspect]
     Dates: start: 20040204
  14. CLOZARIL [Suspect]
     Dosage: 700 MG, UNK
     Dates: start: 20100727, end: 20100921

REACTIONS (7)
  - B-CELL LYMPHOMA [None]
  - WHITE BLOOD CELL COUNT DECREASED [None]
  - BURKITT'S LYMPHOMA [None]
  - PARANOIA [None]
  - NEUTROPENIA [None]
  - THROMBOCYTOPENIA [None]
  - LYMPHOPENIA [None]
